FAERS Safety Report 11874824 (Version 1)
Quarter: 2015Q4

REPORT INFORMATION
  Report Type: Report from Study
  Country: US (occurrence: US)
  Receive Date: 20151229
  Receipt Date: 20151229
  Transmission Date: 20160305
  Serious: No
  Sender: FDA-Public Use
  Company Number: PHEH2015US002195

PATIENT
  Age: 84 Year
  Sex: Female

DRUGS (1)
  1. TOBI [Suspect]
     Active Substance: TOBRAMYCIN
     Indication: PRODUCT USED FOR UNKNOWN INDICATION
     Dosage: 300 MG, BID
     Route: 055

REACTIONS (4)
  - Vulvovaginal mycotic infection [Unknown]
  - Incorrect drug administration duration [Unknown]
  - Dyspnoea [Unknown]
  - Speech disorder [Unknown]

NARRATIVE: CASE EVENT DATE: 20150125
